FAERS Safety Report 25420897 (Version 3)
Quarter: 2025Q3

REPORT INFORMATION
  Report Type: Spontaneous
  Country: US (occurrence: US)
  Receive Date: 20250611
  Receipt Date: 20250818
  Transmission Date: 20251021
  Serious: No
  Sender: SANOFI AVENTIS
  Company Number: US-SA-2025SA164514

PATIENT
  Age: 65 Year
  Sex: Female

DRUGS (1)
  1. DUPIXENT [Suspect]
     Active Substance: DUPILUMAB
     Indication: Gastrooesophageal reflux disease
     Dosage: 300 MG, QOW
     Route: 058
     Dates: start: 202410

REACTIONS (12)
  - Skin irritation [Unknown]
  - Swelling face [Unknown]
  - Pruritus [Unknown]
  - Dry eye [Unknown]
  - Mental status changes [Unknown]
  - General physical health deterioration [Unknown]
  - Rash [Unknown]
  - Eye irritation [Unknown]
  - Dry skin [Unknown]
  - Visual impairment [Unknown]
  - Condition aggravated [Unknown]
  - Product use in unapproved indication [Unknown]

NARRATIVE: CASE EVENT DATE: 20241001
